FAERS Safety Report 19566405 (Version 1)
Quarter: 2021Q3

REPORT INFORMATION
  Report Type: Report from Study
  Country: US (occurrence: US)
  Receive Date: 20210714
  Receipt Date: 20210714
  Transmission Date: 20211014
  Serious: Yes (Hospitalization, Other)
  Sender: FDA-Public Use
  Company Number: NVSC2021US152467

PATIENT
  Age: 55 Year
  Sex: Female

DRUGS (3)
  1. ENTRESTO [Suspect]
     Active Substance: SACUBITRIL\VALSARTAN
     Dosage: UNK, LOWEST DOSE
     Route: 065
  2. ENTRESTO [Suspect]
     Active Substance: SACUBITRIL\VALSARTAN
     Dosage: 200 MG, BID (97/103 MG)
     Route: 065
  3. ENTRESTO [Suspect]
     Active Substance: SACUBITRIL\VALSARTAN
     Indication: CARDIAC FAILURE
     Dosage: 200 MG, BID (97/103 MG)
     Route: 048
     Dates: start: 201909

REACTIONS (7)
  - Dyspnoea [Unknown]
  - Renal failure [Unknown]
  - Fatigue [Unknown]
  - Loss of consciousness [Unknown]
  - Breast cancer [Unknown]
  - Malaise [Unknown]
  - Fluid imbalance [Unknown]

NARRATIVE: CASE EVENT DATE: 20210625
